FAERS Safety Report 13332701 (Version 4)
Quarter: 2017Q2

REPORT INFORMATION
  Report Type: Spontaneous
  Country: GB (occurrence: GB)
  Receive Date: 20170313
  Receipt Date: 20170607
  Transmission Date: 20170830
  Serious: Yes (Hospitalization)
  Sender: FDA-Public Use
  Company Number: GB-ALLERGAN-1709316US

PATIENT
  Age: 68 Year
  Sex: Female

DRUGS (2)
  1. HTR PATCH (NOS) [Concomitant]
     Route: 065
  2. CITALOPRAM HYDROBROMIDE - BP [Suspect]
     Active Substance: CITALOPRAM HYDROBROMIDE
     Indication: ANXIETY
     Dosage: 10 MG, QD
     Route: 048
     Dates: start: 20170302, end: 20170302

REACTIONS (7)
  - Dyskinesia [Recovered/Resolved]
  - Dry mouth [Recovered/Resolved]
  - Restlessness [Recovered/Resolved]
  - Anxiety [Recovered/Resolved]
  - Feeling cold [Recovered/Resolved]
  - Fear [Recovered/Resolved]
  - Chest pain [Recovered/Resolved]

NARRATIVE: CASE EVENT DATE: 20170303
